FAERS Safety Report 17970251 (Version 4)
Quarter: 2020Q3

REPORT INFORMATION
  Report Type: Report from Study
  Country: JP (occurrence: JP)
  Receive Date: 20200701
  Receipt Date: 20200828
  Transmission Date: 20201103
  Serious: Yes (Death, Life-Threatening, Hospitalization)
  Sender: FDA-Public Use
  Company Number: JP-GILEAD-2019-0442192

PATIENT
  Age: 52 Year
  Sex: Female
  Weight: 98 kg

DRUGS (15)
  1. RIFXIMA [Concomitant]
     Active Substance: RIFAXIMIN
     Indication: HEPATIC ENCEPHALOPATHY
     Dosage: 2 DOSAGE FORM, TID
     Route: 048
     Dates: start: 20190226
  2. BRUFEN [IBUPROFEN] [Suspect]
     Active Substance: IBUPROFEN
     Indication: PAIN IN EXTREMITY
     Dosage: 1 DOSAGE FORM, TID
     Route: 048
     Dates: end: 20191218
  3. AMINOLEBAN EN [Concomitant]
     Active Substance: UNSPECIFIED INGREDIENT
     Indication: HYPOALBUMINAEMIA
     Dosage: 1 DOSAGE FORM, BID
     Route: 048
     Dates: start: 20180407
  4. SOFOSBUVIR W/VELPATASVIR [Suspect]
     Active Substance: SOFOSBUVIR\VELPATASVIR
     Indication: CHRONIC HEPATITIS C
     Dosage: 1 DOSAGE FORM
     Route: 048
     Dates: start: 20190615, end: 20190906
  5. FUROSEMIDE. [Concomitant]
     Active Substance: FUROSEMIDE
     Indication: OEDEMA DUE TO HEPATIC DISEASE
     Dosage: 1 DOSAGE FORM, QD
     Route: 048
     Dates: start: 20180830
  6. SOFOSBUVIR W/VELPATASVIR [Suspect]
     Active Substance: SOFOSBUVIR\VELPATASVIR
     Indication: HEPATIC CIRRHOSIS
  7. MIYA?BM [Concomitant]
     Active Substance: CLOSTRIDIUM BUTYRICUM SPORES STRAIN M-55
     Indication: GASTROENTERITIS
     Dosage: 2 DOSAGE FORM, TID
     Route: 048
     Dates: start: 20190205
  8. LOXOPROFEN SODIUM HYDRATE [Concomitant]
     Active Substance: LOXOPROFEN SODIUM DIHYDRATE
     Indication: PROPHYLAXIS
     Route: 051
  9. DOMPERIDONE [Concomitant]
     Active Substance: DOMPERIDONE
     Dosage: UNK
     Route: 048
     Dates: end: 20191205
  10. URSODEOXYCHOLIC ACID [Concomitant]
     Active Substance: URSODIOL
     Indication: HEPATIC CIRRHOSIS
     Route: 048
  11. PARIET [Concomitant]
     Active Substance: RABEPRAZOLE SODIUM
     Indication: VARICES OESOPHAGEAL
     Dosage: 2 DOSAGE FORM, BID
     Route: 048
     Dates: start: 20180830
  12. AMINOLEBAN [Concomitant]
     Active Substance: AMINO ACIDS, SOURCE UNSPECIFIED
     Indication: DISEASE COMPLICATION
     Route: 048
  13. SPIRONOLACTONE. [Concomitant]
     Active Substance: SPIRONOLACTONE
     Indication: OEDEMA DUE TO HEPATIC DISEASE
     Dosage: 2 DOSAGE FORM, QD
     Route: 048
     Dates: start: 20180830
  14. DIPHENHYDRAMIN [Concomitant]
     Active Substance: DIPHENHYDRAMINE
     Indication: PROPHYLAXIS
     Dosage: UNK
     Route: 051
     Dates: start: 20190809, end: 20190823
  15. NU?LOTAN [Concomitant]
     Active Substance: LOSARTAN POTASSIUM
     Indication: HYPERTENSION
     Dosage: 1 DOSAGE FORM, QD
     Route: 048
     Dates: start: 20190830

REACTIONS (5)
  - Intra-abdominal haemorrhage [Fatal]
  - Anaemia [Recovered/Resolved]
  - Gastric varices haemorrhage [Recovered/Resolved]
  - Pyrexia [Recovered/Resolved]
  - Pruritus [Recovered/Resolved]

NARRATIVE: CASE EVENT DATE: 20190809
